FAERS Safety Report 5386235-2 (Version None)
Quarter: 2007Q3

REPORT INFORMATION
  Report Type: 
  Country: None (occurrence: None)
  Receive Date: 20070710
  Receipt Date: 20070710
  Transmission Date: 20080115
  Serious: Yes (Life-Threatening, Other)
  Sender: FDA-Public Use
  Company Number: None

PATIENT
  Sex: Male
  Weight: 82.5547 kg

DRUGS (1)
  1. TEGRETOL-XR [Suspect]
     Indication: CONVULSION PROPHYLAXIS
     Dosage: 400MG TWICE A DAY PO
     Route: 048
     Dates: start: 20070201, end: 20070301

REACTIONS (9)
  - ALANINE AMINOTRANSFERASE INCREASED [None]
  - ASPARTATE AMINOTRANSFERASE INCREASED [None]
  - CHILLS [None]
  - FATIGUE [None]
  - MALAISE [None]
  - MYALGIA [None]
  - NECK PAIN [None]
  - PYREXIA [None]
  - RED BLOOD CELL SEDIMENTATION RATE INCREASED [None]
